FAERS Safety Report 10037375 (Version 1)
Quarter: 2014Q1

REPORT INFORMATION
  Report Type: Spontaneous
  Country: GB (occurrence: GB)
  Receive Date: 20140326
  Receipt Date: 20140326
  Transmission Date: 20141002
  Serious: Yes (Hospitalization)
  Sender: FDA-Public Use
  Company Number: GB-ACCORD-022609

PATIENT
  Sex: 0

DRUGS (4)
  1. FLUOROURACIL [Suspect]
     Indication: COLORECTAL CANCER
  2. LEUCOVORIN [Suspect]
     Indication: COLORECTAL CANCER
     Dosage: UNK
  3. CICLOSPORIN [Suspect]
     Indication: OFF LABEL USE
     Dosage: UNK
  4. CAMPTO [Suspect]
     Indication: PRODUCT USED FOR UNKNOWN INDICATION

REACTIONS (2)
  - Condition aggravated [Recovering/Resolving]
  - Colorectal cancer [Recovering/Resolving]
